FAERS Safety Report 7457853-2 (Version None)
Quarter: 2011Q2

REPORT INFORMATION
  Report Type: 
  Country: None (occurrence: None)
  Receive Date: 20110504
  Receipt Date: 20110421
  Transmission Date: 20111010
  Serious: No
  Sender: FDA-Public Use
  Company Number: US-B.I. PHARMACEUTICALS,INC./RIDGEFIELD-2011-BP-11447BP

PATIENT
  Sex: Female

DRUGS (8)
  1. HYDROCHLOROTHIAZIDE [Concomitant]
     Indication: OEDEMA PERIPHERAL
     Dosage: 25 MG
     Route: 048
     Dates: start: 20090101
  2. AMLODIPINE BESYLATE [Concomitant]
     Indication: HYPERTENSION
     Dosage: 2.5 MG
     Route: 048
     Dates: start: 19970101
  3. AVAPRO [Concomitant]
     Indication: HYPERTENSION
     Dosage: 150 MG
     Route: 048
     Dates: start: 19970101
  4. ATENOLOL [Concomitant]
     Indication: ATRIAL FIBRILLATION
     Dosage: 25 MG
     Route: 048
     Dates: start: 19970101
  5. LEVOTHYROXINE SODIUM [Concomitant]
     Indication: HYPOTHYROIDISM
     Route: 048
     Dates: start: 19970101
  6. PRADAXA [Suspect]
     Indication: ATRIAL FIBRILLATION
     Dosage: 300 MG
     Route: 048
     Dates: start: 20110301, end: 20110413
  7. ASPIRIN [Concomitant]
     Indication: ATRIAL FIBRILLATION
     Dosage: 325 MG
     Route: 048
     Dates: start: 20110401
  8. COUMADIN [Concomitant]
     Indication: ATRIAL FIBRILLATION
     Dates: start: 20110401

REACTIONS (4)
  - ERYTHEMA [None]
  - URTICARIA [None]
  - RASH [None]
  - PRURITUS [None]
